FAERS Safety Report 4499013-3 (Version None)
Quarter: 2004Q4

REPORT INFORMATION
  Report Type: 
  Country: None (occurrence: None)
  Receive Date: 20040927
  Receipt Date: 20040601
  Transmission Date: 20050328
  Serious: No
  Sender: FDA-Public Use
  Company Number: USA040668896

PATIENT
  Age: 8 Year
  Sex: Male
  Weight: 35 kg

DRUGS (1)
  1. STRATTERA [Suspect]
     Indication: ATTENTION DEFICIT/HYPERACTIVITY DISORDER
     Dosage: 36 MG DAY
     Dates: start: 20040522

REACTIONS (6)
  - ABNORMAL BEHAVIOUR [None]
  - DISTURBANCE IN ATTENTION [None]
  - DRUG INEFFECTIVE [None]
  - FATIGUE [None]
  - SOMNOLENCE [None]
  - STOMACH DISCOMFORT [None]
